FAERS Safety Report 17527732 (Version 1)
Quarter: 2020Q1

REPORT INFORMATION
  Report Type: Other
  Country: GB (occurrence: GB)
  Receive Date: 20200311
  Receipt Date: 20200311
  Transmission Date: 20200409
  Serious: Yes (Other)
  Sender: FDA-Public Use
  Company Number: GB-LUPIN PHARMACEUTICALS INC.-2020-01234

PATIENT
  Age: 87 Year
  Sex: Female
  Weight: 51.8 kg

DRUGS (7)
  1. AMITRIPTYLINE [Concomitant]
     Active Substance: AMITRIPTYLINE
     Indication: SLEEP DISORDER
     Dosage: 10 MILLIGRAM, QD
     Route: 065
     Dates: start: 20191023, end: 20191121
  2. AMOXICILLIN. [Concomitant]
     Active Substance: AMOXICILLIN
     Indication: PRODUCT USED FOR UNKNOWN INDICATION
     Dosage: 1500 MILLIGRAM, QD
     Route: 065
     Dates: start: 20200108
  3. RISPERIDONE. [Concomitant]
     Active Substance: RISPERIDONE
     Indication: PRODUCT USED FOR UNKNOWN INDICATION
     Dosage: 500 MICROGRAM (HALF TO BE TAKEN ONCE OR TWICE A DAY IF REQUIRED)
     Route: 065
     Dates: start: 20200115
  4. HALOPERIDOL. [Concomitant]
     Active Substance: HALOPERIDOL
     Indication: AGITATION
     Dosage: 500 MICROGRAM, QD (IN THE AFTERNOON OR EVENING)
     Route: 065
     Dates: start: 20200103
  5. MEMANTINE HYDROCHLORIDE TABLETS [Suspect]
     Active Substance: MEMANTINE HYDROCHLORIDE
     Indication: PRODUCT USED FOR UNKNOWN INDICATION
     Dosage: 10 MILLIGRAM, QD (NIGHT)
     Route: 065
     Dates: start: 20191206, end: 20200121
  6. AMITRIPTYLINE [Concomitant]
     Active Substance: AMITRIPTYLINE
     Dosage: 10 MILLIGRAM, QD
     Route: 065
     Dates: start: 20191215, end: 20200103
  7. FLUAD NOS [Concomitant]
     Active Substance: INFLUENZA VIRUS VACCINE
     Indication: DEMENTIA ALZHEIMER^S TYPE
     Dosage: 0.5 MILLILITER (AS DIRECTED), SUSPENSION FOR INJECTION IN PRE-FILLED SYRINGE
     Route: 065
     Dates: start: 20191105, end: 20191218

REACTIONS (1)
  - Agitation [Unknown]
